FAERS Safety Report 8897796 (Version 3)
Quarter: 2013Q1

REPORT INFORMATION
  Report Type: Spontaneous
  Country: AR (occurrence: AR)
  Receive Date: 20121109
  Receipt Date: 20130109
  Transmission Date: 20140127
  Serious: Yes (Hospitalization, Other)
  Sender: FDA-Public Use
  Company Number: AR-ELI_LILLY_AND_COMPANY-AR201211001094

PATIENT
  Age: 67 Year
  Sex: Male

DRUGS (6)
  1. ALIMTA [Suspect]
     Indication: LUNG ADENOCARCINOMA
     Dosage: 500 MG/M2, EVERY 21 DAYS
     Route: 042
     Dates: start: 20121018
  2. CISPLATIN [Concomitant]
     Dosage: UNK
     Dates: start: 20121018
  3. DEXAMETHASONE [Concomitant]
     Dosage: 8 MG, UNK
  4. FOLIC ACID [Concomitant]
  5. VITAMIN B COMPLEX [Concomitant]
  6. BENADRYL [Concomitant]

REACTIONS (3)
  - Drug hypersensitivity [Recovered/Resolved]
  - Malignant neoplasm progression [Unknown]
  - General physical health deterioration [Unknown]
